FAERS Safety Report 8481879-3 (Version None)
Quarter: 2012Q3

REPORT INFORMATION
  Report Type: 
  Country: None (occurrence: None)
  Receive Date: 20120702
  Receipt Date: 20120621
  Transmission Date: 20120928
  Serious: Yes (Other)
  Sender: FDA-Public Use
  Company Number: FR-ASTRAZENECA-2012SE42781

PATIENT
  Sex: Male

DRUGS (1)
  1. XYLOCAINE VISCOUS [Suspect]
     Indication: INDUCTION OF ANAESTHESIA
     Route: 065

REACTIONS (3)
  - IRRITABILITY [None]
  - ANGIOEDEMA [None]
  - HYPERSENSITIVITY [None]
